FAERS Safety Report 25962991 (Version 1)
Quarter: 2025Q4

REPORT INFORMATION
  Report Type: Report from Study
  Country: US (occurrence: US)
  Receive Date: 20251027
  Receipt Date: 20251027
  Transmission Date: 20260118
  Serious: Yes (Other)
  Sender: PFIZER
  Company Number: US-PFIZER INC-202500210778

PATIENT
  Age: 78 Year
  Sex: Male

DRUGS (2)
  1. BRAFTOVI [Suspect]
     Active Substance: ENCORAFENIB
     Dosage: #6 / 75MG CAPSULES (450MG TOTAL) PO QD
     Route: 048
     Dates: start: 20250910
  2. MEKTOVI [Suspect]
     Active Substance: BINIMETINIB
     Dosage: #3 - 15MG TABLETS (45MG TOTAL) PO QD
     Route: 048
     Dates: start: 20250910

REACTIONS (4)
  - Hypersomnia [Recovered/Resolved]
  - Condition aggravated [Recovered/Resolved]
  - Headache [Recovered/Resolved]
  - Off label use [Unknown]

NARRATIVE: CASE EVENT DATE: 20250101
